FAERS Safety Report 18340296 (Version 6)
Quarter: 2020Q4

REPORT INFORMATION
  Report Type: Spontaneous
  Country: US (occurrence: US)
  Receive Date: 20201002
  Receipt Date: 20201123
  Transmission Date: 20210113
  Serious: No
  Sender: FDA-Public Use
  Company Number: US-PFIZER INC-2020373338

PATIENT
  Age: 4 Year
  Sex: Male

DRUGS (6)
  1. CORTEF [Concomitant]
     Active Substance: HYDROCORTISONE
     Indication: ADRENAL INSUFFICIENCY
     Dosage: 5 MG, DAILY
  2. GENOTROPIN [Suspect]
     Active Substance: SOMATROPIN
     Dosage: 0.5 MG, DAILY
  3. GENOTROPIN [Suspect]
     Active Substance: SOMATROPIN
     Dosage: 0.6MG ALTERNATING WITH 0.5MG
     Dates: start: 20200918
  4. GENOTROPIN [Suspect]
     Active Substance: SOMATROPIN
     Dosage: 1.0 MG, DAILY
  5. GENOTROPIN [Suspect]
     Active Substance: SOMATROPIN
     Indication: HYPOPITUITARISM
     Dosage: 0.5MG ALTERNATING WITH 0.6MG
     Dates: start: 20200917
  6. SYNTHROID [Concomitant]
     Active Substance: LEVOTHYROXINE SODIUM
     Indication: THYROID DISORDER
     Dosage: 0.75 UG, 1X/DAY

REACTIONS (8)
  - Incorrect dose administered by device [Unknown]
  - Illness [Unknown]
  - Peripheral swelling [Unknown]
  - Drug dose omission by device [Unknown]
  - Product prescribing error [Unknown]
  - Device issue [Unknown]
  - Mass [Unknown]
  - Device leakage [Unknown]

NARRATIVE: CASE EVENT DATE: 20200918
